FAERS Safety Report 7881394-1 (Version None)
Quarter: 2011Q4

REPORT INFORMATION
  Report Type: 
  Country: None (occurrence: None)
  Receive Date: 20111101
  Receipt Date: 20110527
  Transmission Date: 20120403
  Serious: No
  Sender: FDA-Public Use
  Company Number: US-AMGEN-USASP2011027898

PATIENT
  Sex: Female

DRUGS (1)
  1. ENBREL [Suspect]
     Indication: PSORIASIS
     Dosage: 50 MG, QWK
     Dates: start: 20080715

REACTIONS (8)
  - OEDEMA PERIPHERAL [None]
  - WRONG DRUG ADMINISTERED [None]
  - CYSTITIS [None]
  - SWELLING FACE [None]
  - INCORRECT STORAGE OF DRUG [None]
  - PSORIASIS [None]
  - INJECTION SITE PAIN [None]
  - INFLUENZA LIKE ILLNESS [None]
